FAERS Safety Report 7917563-1 (Version None)
Quarter: 2011Q4

REPORT INFORMATION
  Report Type: 
  Country: None (occurrence: None)
  Receive Date: 20111116
  Receipt Date: 20111110
  Transmission Date: 20120403
  Serious: Yes (Other)
  Sender: FDA-Public Use
  Company Number: JP-ROCHE-1008732

PATIENT
  Sex: Female
  Weight: 49 kg

DRUGS (12)
  1. EMEND [Suspect]
     Indication: PROPHYLAXIS
     Route: 048
     Dates: start: 20111025
  2. LEVOLEUCOVORIN CALCIUM [Suspect]
     Indication: RECTAL CANCER METASTATIC
     Route: 041
     Dates: start: 20111025, end: 20111025
  3. ALOXI [Concomitant]
     Indication: PROPHYLAXIS
     Route: 042
     Dates: start: 20111025
  4. FLUOROURACIL [Suspect]
     Route: 041
     Dates: start: 20111025
  5. OXALIPLATIN [Suspect]
     Indication: RECTAL CANCER METASTATIC
     Route: 041
     Dates: start: 20111025, end: 20111025
  6. EMEND [Suspect]
     Route: 048
     Dates: start: 20111026
  7. DECADRON [Concomitant]
     Indication: PROPHYLAXIS
     Route: 048
     Dates: start: 20111025
  8. FLUOROURACIL [Suspect]
     Indication: RECTAL CANCER METASTATIC
     Route: 040
     Dates: start: 20111025, end: 20111025
  9. AVASTIN [Suspect]
     Indication: RECTAL CANCER METASTATIC
     Route: 041
     Dates: start: 20111025, end: 20111025
  10. RESTAMIN [Concomitant]
     Indication: PROPHYLAXIS
     Route: 048
     Dates: start: 20111025
  11. FAMOTIDINE [Concomitant]
     Indication: PROPHYLAXIS
     Route: 042
     Dates: start: 20111025
  12. DEXAMETHASONE SODIUM PHOSPHATE [Concomitant]
     Indication: PROPHYLAXIS
     Route: 042
     Dates: start: 20111025

REACTIONS (3)
  - DECREASED APPETITE [None]
  - HYPOCHLORAEMIA [None]
  - HYPONATRAEMIA [None]
